FAERS Safety Report 21754311 (Version 1)
Quarter: 2022Q4

REPORT INFORMATION
  Report Type: Spontaneous
  Country: GB (occurrence: GB)
  Receive Date: 20221220
  Receipt Date: 20221220
  Transmission Date: 20230112
  Serious: Yes (Death, Other)
  Sender: FDA-Public Use
  Company Number: GB-INCYTE CORPORATION-2022IN012348

PATIENT

DRUGS (2)
  1. PEMAZYRE [Suspect]
     Active Substance: PEMIGATINIB
     Indication: Cholangiocarcinoma
     Dosage: 13.5 MILLIGRAM, DAY 1 - 14 Q21D
     Route: 065
     Dates: start: 202107
  2. PEMAZYRE [Suspect]
     Active Substance: PEMIGATINIB
     Dosage: 9 MILLIGRAM, QD CYCLE 4
     Route: 065
     Dates: end: 202201

REACTIONS (8)
  - Cholangiocarcinoma [Fatal]
  - Disease progression [Fatal]
  - Metastases to peritoneum [Unknown]
  - Ascites [Unknown]
  - Intestinal obstruction [Recovering/Resolving]
  - Skin induration [Unknown]
  - Hyperphosphataemia [Recovering/Resolving]
  - Arthralgia [Unknown]

NARRATIVE: CASE EVENT DATE: 20220201
